FAERS Safety Report 6119977-1 (Version None)
Quarter: 2009Q1

REPORT INFORMATION
  Report Type: 
  Country: None (occurrence: None)
  Receive Date: 20090316
  Receipt Date: 20090304
  Transmission Date: 20090719
  Serious: Yes (Death, Hospitalization, Other)
  Sender: FDA-Public Use
  Company Number: AT-ELI_LILLY_AND_COMPANY-AT200903000915

PATIENT
  Age: 71 Year
  Sex: Female
  Weight: 80 kg

DRUGS (4)
  1. ZYPREXA [Suspect]
     Indication: SCHIZOPHRENIA, PARANOID TYPE
     Dosage: 10 MG, DAILY (1/D)
     Route: 048
     Dates: start: 20081006, end: 20090201
  2. RISPERIDONE [Concomitant]
     Indication: SCHIZOPHRENIA, PARANOID TYPE
     Dosage: 50 MG, DAILY (1/D)
     Route: 058
     Dates: start: 20080101, end: 20090201
  3. CIPRALEX [Concomitant]
     Dosage: 20 MG, DAILY (1/D)
     Route: 048
     Dates: start: 20080801, end: 20090201
  4. DOMINAL FORTE [Concomitant]
     Dosage: 40 MG, DAILY (1/D)
     Route: 048
     Dates: start: 20080201, end: 20090201

REACTIONS (3)
  - BRONCHIAL CARCINOMA [None]
  - DEATH [None]
  - HOSPITALISATION [None]
